FAERS Safety Report 8176620-8 (Version None)
Quarter: 2012Q1

REPORT INFORMATION
  Report Type: 
  Country: None (occurrence: None)
  Receive Date: 20120301
  Receipt Date: 20120223
  Transmission Date: 20120608
  Serious: Yes (Hospitalization)
  Sender: FDA-Public Use
  Company Number: US-TEVA-324350USA

PATIENT
  Age: 58 Year
  Sex: Female

DRUGS (6)
  1. LISINOPRIL [Suspect]
     Indication: HYPERTENSION
     Dates: start: 20000101
  2. FLUOXETINE [Suspect]
     Indication: ANXIETY
     Dosage: 40 MILLIGRAM;
     Route: 048
  3. IBUPROFEN [Suspect]
     Indication: SINUS HEADACHE
     Dosage: PRN
  4. HYDROCHLOROTHIAZIDE [Suspect]
     Indication: HYPERTENSION
     Dates: start: 20000101
  5. RANITIDINE [Suspect]
     Indication: GASTROOESOPHAGEAL REFLUX DISEASE
     Dosage: PRN
  6. INVESTIGATIONAL DRUG (SCH 396411 MK-3641) [Suspect]
     Indication: SEASONAL ALLERGY
     Route: 060

REACTIONS (5)
  - FALL [None]
  - DIZZINESS [None]
  - ANKLE FRACTURE [None]
  - TIBIA FRACTURE [None]
  - FIBULA FRACTURE [None]
